FAERS Safety Report 4299893-0 (Version None)
Quarter: 2004Q1

REPORT INFORMATION
  Report Type: 
  Country: None (occurrence: None)
  Receive Date: 20040219
  Receipt Date: 20040219
  Transmission Date: 20041129
  Serious: Yes (Hospitalization)
  Sender: FDA-Public Use
  Company Number: None

PATIENT
  Age: 73 Year
  Sex: Male

DRUGS (3)
  1. HYDROCHLOROTHIAZIDE [Suspect]
     Indication: HYPERTENSION
     Dosage: 1 PO QD
     Route: 048
  2. BACLOFEN [Concomitant]
  3. TERAZOSIN HCL [Concomitant]

REACTIONS (2)
  - LETHARGY [None]
  - MENTAL STATUS CHANGES [None]
